FAERS Safety Report 20961199 (Version 1)
Quarter: 2022Q2

REPORT INFORMATION
  Report Type: Spontaneous
  Country: US (occurrence: None)
  Receive Date: 20220615
  Receipt Date: 20220615
  Transmission Date: 20220721
  Serious: No
  Sender: FDA-Public Use
  Company Number: 2022A208393

PATIENT
  Sex: Female
  Weight: 65.8 kg

DRUGS (1)
  1. PULMICORT FLEXHALER [Suspect]
     Active Substance: BUDESONIDE
     Indication: Asthma
     Dosage: PULMICORT FLEXHALER 90 MCG, DAILY
     Route: 055

REACTIONS (3)
  - Asthma [Unknown]
  - Incorrect dose administered by device [Unknown]
  - Device use issue [Unknown]
